FAERS Safety Report 5945513-6 (Version None)
Quarter: 2008Q4

REPORT INFORMATION
  Report Type: 
  Country: None (occurrence: None)
  Receive Date: 20081107
  Receipt Date: 20081028
  Transmission Date: 20090506
  Serious: Yes (Other)
  Sender: FDA-Public Use
  Company Number: US-PFIZER INC-2008090933

PATIENT
  Sex: Female

DRUGS (7)
  1. LOPID [Suspect]
     Indication: BLOOD TRIGLYCERIDES DECREASED
     Dates: start: 20060101, end: 20081022
  2. LEVOXYL [Concomitant]
  3. FOCALIN [Concomitant]
  4. ASPIRIN [Concomitant]
  5. PRILOSEC [Concomitant]
  6. LAMICTAL [Concomitant]
  7. FUROSEMIDE [Concomitant]

REACTIONS (7)
  - DRY MOUTH [None]
  - FATIGUE [None]
  - MALABSORPTION [None]
  - RETINAL OEDEMA [None]
  - VISION BLURRED [None]
  - VISUAL IMPAIRMENT [None]
  - WEIGHT INCREASED [None]
